FAERS Safety Report 6612472-2 (Version None)
Quarter: 2010Q1

REPORT INFORMATION
  Report Type: 
  Country: None (occurrence: None)
  Receive Date: 20100303
  Receipt Date: 20100219
  Transmission Date: 20100710
  Serious: Yes (Other)
  Sender: FDA-Public Use
  Company Number: JP-PFIZER INC-2010023027

PATIENT

DRUGS (1)
  1. SOLANAX [Suspect]
     Dosage: 4.8 MG/DAY (12 TABLETS)
     Route: 048
     Dates: start: 20100219

REACTIONS (3)
  - DYSLALIA [None]
  - OVERDOSE [None]
  - SOMNOLENCE [None]
